FAERS Safety Report 15706652 (Version 2)
Quarter: 2019Q1

REPORT INFORMATION
  Report Type: Other
  Country: US (occurrence: US)
  Receive Date: 20181210
  Receipt Date: 20190103
  Transmission Date: 20190417
  Serious: Yes (Other)
  Sender: FDA-Public Use
  Company Number: US-PINE PHARMACEUTICALS, LLC-2059942

PATIENT

DRUGS (1)
  1. BEVACIZUMAB. [Suspect]
     Active Substance: BEVACIZUMAB
     Route: 031
     Dates: start: 20181119, end: 20181119

REACTIONS (1)
  - Iritis [Recovering/Resolving]

NARRATIVE: CASE EVENT DATE: 20181125
